FAERS Safety Report 9514501 (Version 1)
Quarter: 2013Q3

REPORT INFORMATION
  Report Type: Spontaneous
  Country: US (occurrence: US)
  Receive Date: 20130911
  Receipt Date: 20130911
  Transmission Date: 20140515
  Serious: Yes (Hospitalization)
  Sender: FDA-Public Use
  Company Number: US-SUN PHARMACEUTICAL INDUSTRIES LTD-2013SUN04605

PATIENT
  Sex: 0

DRUGS (5)
  1. OLANZAPINE 10 MG TABLETS [Suspect]
     Indication: MANIA
     Dosage: 10 MG, UNK
     Route: 048
  2. OLANZAPINE 10 MG TABLETS [Suspect]
     Indication: PSYCHOTIC DISORDER
     Dosage: 10 MG, BID
     Route: 048
  3. CLONAZEPAM [Concomitant]
     Indication: MANIA
     Dosage: 1 MG, BID
     Route: 048
  4. CLONAZEPAM [Concomitant]
     Indication: PSYCHOTIC DISORDER
  5. LAMOTRIGINE [Concomitant]
     Dosage: 25 MG, UNK

REACTIONS (2)
  - Hypertriglyceridaemia [Recovering/Resolving]
  - Weight increased [Unknown]
